FAERS Safety Report 8029023-0 (Version None)
Quarter: 2012Q1

REPORT INFORMATION
  Report Type: 
  Country: None (occurrence: None)
  Receive Date: 20120106
  Receipt Date: 20111227
  Transmission Date: 20120608
  Serious: Yes (Hospitalization)
  Sender: FDA-Public Use
  Company Number: TR-GILEAD-2011-0048264

PATIENT
  Sex: Female

DRUGS (1)
  1. VIREAD [Suspect]
     Indication: INTENTIONAL OVERDOSE
     Dosage: 4900 MG, UNK
     Route: 048

REACTIONS (2)
  - INTENTIONAL OVERDOSE [None]
  - SUICIDE ATTEMPT [None]
